FAERS Safety Report 6802700-2 (Version None)
Quarter: 2010Q2

REPORT INFORMATION
  Report Type: 
  Country: None (occurrence: None)
  Receive Date: 20100628
  Receipt Date: 20100617
  Transmission Date: 20101027
  Serious: Yes (Disabling)
  Sender: FDA-Public Use
  Company Number: DE-SANOFI-AVENTIS-2010SA032741

PATIENT
  Age: 88 Year
  Sex: Female
  Weight: 75 kg

DRUGS (8)
  1. MULTAQ [Suspect]
     Route: 048
     Dates: start: 20100210, end: 20100602
  2. SIMVASTATIN [Interacting]
     Indication: DRUG USE FOR UNKNOWN INDICATION
     Route: 048
     Dates: start: 20100421, end: 20100428
  3. MARCUMAR [Concomitant]
     Dosage: DOSAGE: DEPENDS ON INR
     Route: 065
  4. METFORMIN HCL [Concomitant]
     Indication: DIABETES MELLITUS
     Route: 065
  5. GALENIC /CANDESARTAN/HYDROCHLOROTHIAZIDE/ [Concomitant]
     Indication: HYPERTENSION
     Dosage: DOSAGE: CANDESARTAN 8MG / HYDROCHLOROTHIAZIDE 12.5 - 1/2 TABLET DAILY
     Route: 065
  6. CARVEDILOL [Concomitant]
     Indication: HEART RATE INCREASED
     Dosage: DOSAGE: 2X1/2 TABLET DAILY
     Route: 065
  7. MOXONIDINE [Concomitant]
     Indication: HYPERTENSION
     Dosage: DOSAGE: 1/2 TABLET DAILY
     Route: 065
  8. CALCIUM CARBONATE/COLECALCIFEROL [Concomitant]
     Indication: OSTEOPOROSIS
     Route: 065

REACTIONS (3)
  - ARTHRALGIA [None]
  - DRUG INTERACTION [None]
  - MYALGIA [None]
